FAERS Safety Report 19384575 (Version 2)
Quarter: 2021Q2

REPORT INFORMATION
  Report Type: Spontaneous
  Country: RU (occurrence: RU)
  Receive Date: 20210608
  Receipt Date: 20210618
  Transmission Date: 20210717
  Serious: Yes (Death)
  Sender: FDA-Public Use
  Company Number: RU-HIKMA PHARMACEUTICALS USA INC.-RU-H14001-21-02510

PATIENT
  Age: 69 Year
  Sex: Female

DRUGS (7)
  1. OMEPRAZOLE. [Concomitant]
     Active Substance: OMEPRAZOLE
     Indication: DYSPEPSIA
     Dosage: 20 MG, ON DEMAND
     Route: 065
     Dates: start: 20140418
  2. PACLITAXEL. [Concomitant]
     Active Substance: PACLITAXEL
     Indication: PRODUCT USED FOR UNKNOWN INDICATION
     Dosage: 175 MG/M2 IV, Q3W
     Route: 041
     Dates: start: 20210123, end: 20210412
  3. POLYSORB [Concomitant]
     Indication: CHRONIC KIDNEY DISEASE
     Route: 065
     Dates: start: 20201215
  4. BETAHISTINE [Concomitant]
     Active Substance: BETAHISTINE
     Indication: VASCULAR ENCEPHALOPATHY
     Route: 065
     Dates: start: 20140418
  5. BEVACIZUMAB. [Concomitant]
     Active Substance: BEVACIZUMAB
     Indication: PRODUCT USED FOR UNKNOWN INDICATION
     Dosage: 15 MG/KG, IV, Q3W
     Route: 041
     Dates: start: 20210123, end: 20210412
  6. RIBOCARBO?L [Suspect]
     Active Substance: CARBOPLATIN
     Indication: CERVIX CARCINOMA
     Route: 042
     Dates: start: 20210123, end: 20210412
  7. BISOPROLOL [Concomitant]
     Active Substance: BISOPROLOL
     Indication: MYOCARDIAL ISCHAEMIA
     Route: 065
     Dates: start: 20140418

REACTIONS (1)
  - Tumour haemorrhage [Fatal]

NARRATIVE: CASE EVENT DATE: 20210424
